FAERS Safety Report 8907826 (Version 1)
Quarter: 2012Q4

REPORT INFORMATION
  Report Type: 
  Country: US (occurrence: US)
  Receive Date: 20121114
  Receipt Date: 20121114
  Transmission Date: 20130627
  Serious: Yes (Other)
  Sender: FDA-Public Use
  Company Number: US-SANOFI-AVENTIS-2012SA081416

PATIENT
  Age: 66 Year
  Sex: Female

DRUGS (14)
  1. FUROSEMIDE [Suspect]
     Indication: SWELLING OF LEGS
     Route: 065
  2. ATENOLOL [Concomitant]
  3. GABAPENTIN [Concomitant]
  4. NISOLDIPINE [Concomitant]
  5. CARBIDOPA/LEVODOPA [Concomitant]
  6. BUPROPION HYDROCHLORIDE [Concomitant]
  7. TRAZODONE HYDROCHLORIDE [Concomitant]
  8. CITALOPRAM HYDROBROMIDE [Concomitant]
  9. DULOXETINE HYDROCHLORIDE [Concomitant]
  10. ZIPRASIDONE HYDROCHLORIDE [Concomitant]
  11. OXYCODONE HYDROCHLORIDE/PARACETAMOL [Concomitant]
  12. MULTIVITAMINS [Concomitant]
  13. OMEGA-3 [Concomitant]
  14. CALCIUM [Concomitant]

REACTIONS (3)
  - Cutaneous lupus erythematosus [Recovered/Resolved]
  - Rash [Recovered/Resolved]
  - Skin plaque [Recovered/Resolved]
